FAERS Safety Report 5295865-8 (Version None)
Quarter: 2007Q2

REPORT INFORMATION
  Report Type: 
  Country: None (occurrence: None)
  Receive Date: 20070413
  Receipt Date: 20070329
  Transmission Date: 20071010
  Serious: Yes (Life-Threatening, Hospitalization)
  Sender: FDA-Public Use
  Company Number: CA-JNJFOC-20070400332

PATIENT
  Sex: Female
  Weight: 81 kg

DRUGS (11)
  1. REMICADE [Suspect]
     Route: 042
  2. REMICADE [Suspect]
     Route: 042
  3. REMICADE [Suspect]
     Indication: COLITIS ULCERATIVE
     Dosage: RECEIVED 3 DOSES IN 2001
     Route: 042
  4. PENTASA [Concomitant]
     Route: 048
  5. IMURAN [Concomitant]
     Dosage: 1-2 TABLETS, ALTERNATING
     Route: 048
  6. SYNTHROID [Concomitant]
  7. CELEXA [Concomitant]
     Route: 048
  8. PENICILLIN [Concomitant]
     Dosage: FOR 10 DAYS
  9. PREDNISONE TAB [Concomitant]
     Indication: PREMEDICATION
     Route: 048
  10. BENADRYL [Concomitant]
     Indication: PREMEDICATION
     Route: 048
  11. SOLU-CORTEF [Concomitant]
     Indication: PREMEDICATION
     Route: 042

REACTIONS (9)
  - DYSPNOEA [None]
  - HYPERAEMIA [None]
  - LOSS OF CONSCIOUSNESS [None]
  - NAUSEA [None]
  - PHARYNGITIS [None]
  - POLYARTHRITIS [None]
  - PYREXIA [None]
  - RASH GENERALISED [None]
  - SHOCK [None]
